FAERS Safety Report 6622345-7 (Version None)
Quarter: 2010Q1

REPORT INFORMATION
  Report Type: 
  Country: None (occurrence: None)
  Receive Date: 20100310
  Receipt Date: 20100125
  Transmission Date: 20100710
  Serious: No
  Sender: FDA-Public Use
  Company Number: US-BIOGENIDEC-2010BI002459

PATIENT
  Sex: Female

DRUGS (1)
  1. AVONEX [Suspect]
     Indication: MULTIPLE SCLEROSIS
     Route: 030
     Dates: start: 20070101

REACTIONS (8)
  - DIZZINESS [None]
  - FALL [None]
  - LIP DISCOLOURATION [None]
  - MUSCULAR WEAKNESS [None]
  - OPTIC NEURITIS [None]
  - PAIN [None]
  - SPEECH DISORDER [None]
  - TREMOR [None]
